FAERS Safety Report 8327344-5 (Version None)
Quarter: 2012Q2

REPORT INFORMATION
  Report Type: 
  Country: None (occurrence: None)
  Receive Date: 20120502
  Receipt Date: 20120423
  Transmission Date: 20120825
  Serious: No
  Sender: FDA-Public Use
  Company Number: US-BIOGENIDEC-2012BI014152

PATIENT
  Sex: Female

DRUGS (2)
  1. AVONEX [Concomitant]
     Indication: MULTIPLE SCLEROSIS
     Route: 030
     Dates: start: 20070306
  2. TYSABRI [Suspect]
     Indication: MULTIPLE SCLEROSIS
     Route: 042
     Dates: start: 20120306

REACTIONS (8)
  - EMOTIONAL DISORDER [None]
  - PERONEAL NERVE PALSY [None]
  - BALANCE DISORDER [None]
  - RASH MACULAR [None]
  - ARTHRALGIA [None]
  - GAIT DISTURBANCE [None]
  - PULSE PRESSURE DECREASED [None]
  - BLOOD GLUCOSE DECREASED [None]
